FAERS Safety Report 4919160-9 (Version None)
Quarter: 2006Q1

REPORT INFORMATION
  Report Type: 
  Country: None (occurrence: None)
  Receive Date: 20060215
  Receipt Date: 20060208
  Transmission Date: 20060701
  Serious: Yes (Other)
  Sender: FDA-Public Use
  Company Number: 2006MP000095

PATIENT

DRUGS (1)
  1. GLIADEL [Suspect]

REACTIONS (4)
  - DEVICE RELATED INFECTION [None]
  - IMPLANT SITE NECROSIS [None]
  - IMPLANT SITE REACTION [None]
  - INTRACRANIAL PRESSURE INCREASED [None]
